FAERS Safety Report 14340495 (Version 1)
Quarter: 2018Q1

REPORT INFORMATION
  Report Type: Spontaneous
  Country: RS (occurrence: RS)
  Receive Date: 20180101
  Receipt Date: 20180101
  Transmission Date: 20180509
  Serious: Yes (Hospitalization)
  Sender: FDA-Public Use
  Company Number: RS-CONCORDIA PHARMACEUTICALS INC.-E2B_00009183

PATIENT
  Age: 37 Year
  Sex: Male

DRUGS (13)
  1. MERCAPTOPURINE. [Suspect]
     Active Substance: MERCAPTOPURINE
     Indication: ACUTE LYMPHOCYTIC LEUKAEMIA
     Dates: start: 2012
  2. DEXASONE [Suspect]
     Active Substance: DEXAMETHASONE
     Indication: ACUTE LYMPHOCYTIC LEUKAEMIA
     Dosage: ; CYCLICAL; HYPER-CVAD IN D1-D14
     Route: 037
     Dates: start: 20120505
  3. VINCRISTINE [Suspect]
     Active Substance: VINCRISTINE
     Indication: ACUTE LYMPHOCYTIC LEUKAEMIA
     Dosage: ; CYCLICAL; HYPER-CVAD- IN D4 AND D11
     Route: 039
     Dates: start: 20120505
  4. HEPARIN [Concomitant]
     Active Substance: HEPARIN SODIUM
     Indication: DEEP VEIN THROMBOSIS
     Dosage: LOW MOLECULAR WEIGHT HEPARIN (LMWH)
     Dates: start: 201204
  5. GRANULOCYTE COLONY-STIMULATING FACTOR [Concomitant]
     Active Substance: GRANULOCYTE COLONY-STIMULATING FACTOR NOS
     Dosage: HYPER-CVAD: IN D3- D21
     Dates: start: 20120512
  6. MERONEM [Concomitant]
     Active Substance: MEROPENEM
     Dates: start: 20120512
  7. CYCLOPHOSPHAMIDE. [Concomitant]
     Active Substance: CYCLOPHOSPHAMIDE
     Indication: ACUTE LYMPHOCYTIC LEUKAEMIA
     Dosage: HYPER-CVAD IN D1, D2 AND D3
     Route: 037
     Dates: start: 20120505
  8. PREDNISOLONE. [Suspect]
     Active Substance: PREDNISOLONE
     Indication: ACUTE LYMPHOCYTIC LEUKAEMIA
     Dates: start: 2012
  9. DIFLUCAN [Concomitant]
     Active Substance: FLUCONAZOLE
     Dates: start: 20120512
  10. VANCOMYCIN [Concomitant]
     Active Substance: VANCOMYCIN
     Dates: start: 20120512
  11. DAUNOBLASTIN [Suspect]
     Active Substance: DAUNORUBICIN HYDROCHLORIDE
     Indication: ACUTE LYMPHOCYTIC LEUKAEMIA
     Dosage: ; CYCLICAL; HYPER-CVAD IN D4
     Route: 037
     Dates: start: 20120505
  12. CARDIOPIRIN [Concomitant]
     Active Substance: ASPIRIN
     Indication: DEEP VEIN THROMBOSIS
     Dates: start: 201204
  13. GRANULOCYTE COLONY-STIMULATING FACTOR [Concomitant]
     Active Substance: GRANULOCYTE COLONY-STIMULATING FACTOR NOS
     Indication: ACUTE LYMPHOCYTIC LEUKAEMIA
     Dosage: HYPER-CVAD: IN D3- D21
     Route: 037
     Dates: start: 20120505

REACTIONS (1)
  - Acute myocardial infarction [Recovered/Resolved]

NARRATIVE: CASE EVENT DATE: 20120515
